FAERS Safety Report 9302777 (Version 1)
Quarter: 2013Q2

REPORT INFORMATION
  Report Type: Spontaneous
  Country: US (occurrence: None)
  Receive Date: 20130517
  Receipt Date: 20130517
  Transmission Date: 20140414
  Serious: Yes (Hospitalization)
  Sender: FDA-Public Use
  Company Number: 148069

PATIENT
  Age: 27 Year
  Sex: Male

DRUGS (1)
  1. KETAMINE HCL [Suspect]
     Indication: DRUG ABUSE

REACTIONS (6)
  - Biliary dilatation [None]
  - Nausea [None]
  - Vomiting [None]
  - Dysuria [None]
  - Abdominal pain [None]
  - Cholangitis [None]
